FAERS Safety Report 12475100 (Version 3)
Quarter: 2016Q3

REPORT INFORMATION
  Report Type: Spontaneous
  Country: US (occurrence: US)
  Receive Date: 20160617
  Receipt Date: 20160712
  Transmission Date: 20161109
  Serious: Yes (Hospitalization)
  Sender: FDA-Public Use
  Company Number: US-SA-2016SA111915

PATIENT
  Age: 35 Year
  Sex: Female
  Weight: 73.61 kg

DRUGS (2)
  1. BACTRIM [Concomitant]
     Active Substance: SULFAMETHOXAZOLE\TRIMETHOPRIM
     Indication: URINARY TRACT INFECTION
     Route: 065
     Dates: end: 20160609
  2. TUBERCULIN PPD [Suspect]
     Active Substance: TUBERCULIN PURIFIED PROTEIN DERIVATIVE
     Indication: TUBERCULIN TEST
     Route: 023
     Dates: start: 20160606, end: 20160606

REACTIONS (24)
  - Urticaria [Unknown]
  - Allergy to vaccine [Unknown]
  - Tachycardia [Unknown]
  - Dyspnoea [Unknown]
  - Asthenia [Unknown]
  - Depression [Unknown]
  - Gait disturbance [Unknown]
  - Lip swelling [Unknown]
  - Swelling face [Unknown]
  - Throat tightness [Not Recovered/Not Resolved]
  - Pain in extremity [Unknown]
  - Migraine [Unknown]
  - Anaphylactic reaction [Unknown]
  - Arthralgia [Unknown]
  - Motion sickness [Unknown]
  - Anxiety [Unknown]
  - Paralysis [Unknown]
  - Chest discomfort [Unknown]
  - Wheezing [Unknown]
  - Muscular weakness [Unknown]
  - Hypoaesthesia [Unknown]
  - Pain [Recovered/Resolved]
  - Hypopnoea [Unknown]
  - Dysphagia [Unknown]

NARRATIVE: CASE EVENT DATE: 20160606
